FAERS Safety Report 14600599 (Version 15)
Quarter: 2019Q1

REPORT INFORMATION
  Report Type: Report from Study
  Country: CA (occurrence: CA)
  Receive Date: 20180305
  Receipt Date: 20190327
  Transmission Date: 20190417
  Serious: Yes (Other)
  Sender: FDA-Public Use
  Company Number: CA-BRISTOL-MYERS SQUIBB COMPANY-BMS-2017-069817

PATIENT
  Age: 75 Year
  Sex: Female

DRUGS (10)
  1. CYTOMEL [Concomitant]
     Active Substance: LIOTHYRONINE SODIUM
     Indication: PRODUCT USED FOR UNKNOWN INDICATION
     Route: 065
  2. PREDNISONE. [Concomitant]
     Active Substance: PREDNISONE
     Indication: PRODUCT USED FOR UNKNOWN INDICATION
     Route: 065
  3. SYNTHROID [Concomitant]
     Active Substance: LEVOTHYROXINE SODIUM
     Indication: PRODUCT USED FOR UNKNOWN INDICATION
     Route: 065
  4. METHOTREXATE. [Concomitant]
     Active Substance: METHOTREXATE
     Indication: PRODUCT USED FOR UNKNOWN INDICATION
     Route: 065
  5. ADVIL (MEFENAMIC ACID) [Concomitant]
     Active Substance: MEFENAMIC ACID
     Indication: PRODUCT USED FOR UNKNOWN INDICATION
     Route: 065
  6. TYLENOL [Concomitant]
     Active Substance: ACETAMINOPHEN
     Indication: PRODUCT USED FOR UNKNOWN INDICATION
     Route: 065
  7. LYRICA [Concomitant]
     Active Substance: PREGABALIN
     Indication: PRODUCT USED FOR UNKNOWN INDICATION
     Route: 065
  8. ABATACEPT [Suspect]
     Active Substance: ABATACEPT
     Indication: RHEUMATOID ARTHRITIS
     Dosage: 750 MG, Q4WK
     Route: 042
     Dates: start: 20170719
  9. VALIUM [Concomitant]
     Active Substance: DIAZEPAM
     Indication: PRODUCT USED FOR UNKNOWN INDICATION
     Route: 065
  10. PLAQUENIL                          /00072602/ [Concomitant]
     Active Substance: HYDROXYCHLOROQUINE DIPHOSPHATE
     Indication: PRODUCT USED FOR UNKNOWN INDICATION
     Route: 065

REACTIONS (37)
  - Eye infection [Recovering/Resolving]
  - Chest pain [Unknown]
  - Erythema [Unknown]
  - Burning sensation [Unknown]
  - Headache [Unknown]
  - Dyspnoea [Unknown]
  - Aphonia [Unknown]
  - Swelling [Unknown]
  - Productive cough [Unknown]
  - Impaired healing [Unknown]
  - Fatigue [Unknown]
  - Skin disorder [Recovering/Resolving]
  - Rash erythematous [Unknown]
  - Gait disturbance [Unknown]
  - Mobility decreased [Unknown]
  - Nodule [Unknown]
  - Hypertension [Recovered/Resolved]
  - Rash macular [Recovering/Resolving]
  - Peripheral swelling [Unknown]
  - Arthralgia [Not Recovered/Not Resolved]
  - Pulmonary congestion [Unknown]
  - Infusion site extravasation [Recovered/Resolved]
  - Pain [Unknown]
  - Photosensitivity reaction [Recovering/Resolving]
  - Fibrosis [Unknown]
  - Thermal burn [Unknown]
  - Hypokinesia [Unknown]
  - Mass [Unknown]
  - Asthenia [Unknown]
  - Oedema peripheral [Unknown]
  - Arthritis [Unknown]
  - Dry skin [Unknown]
  - Psoriasis [Unknown]
  - Blood potassium increased [Recovering/Resolving]
  - Emphysema [Unknown]
  - Infusion site oedema [Not Recovered/Not Resolved]
  - Adverse event [Unknown]

NARRATIVE: CASE EVENT DATE: 20170801
